FAERS Safety Report 9251324 (Version 1)
Quarter: 2013Q1

REPORT INFORMATION
  Report Type: Spontaneous
  Country: US (occurrence: None)
  Receive Date: 20130305
  Receipt Date: 20130305
  Transmission Date: 20140127
  Serious: Yes (Other)
  Sender: FDA-Public Use
  Company Number: 163-21880-12081551

PATIENT
  Age: 72 Year
  Sex: Female

DRUGS (11)
  1. REVLIMID [Suspect]
     Indication: PLASMA CELL MYELOMA
     Dosage: 21 IN 21 D
     Route: 048
     Dates: start: 20110504
  2. BENADRYL(DIPHENHYDRAMINE)(UNKNOWN) [Concomitant]
  3. XANAX(ALPRAZOLAM)(UNKNOWN) [Concomitant]
  4. PHENOBARBITAL(PHENOBARBITAL)(UNKNOWN) [Concomitant]
  5. COUMADIN(WARFARIN SODIUM)(UNKNOWN) [Concomitant]
  6. REFRESH(TEARS PLUS)(UNKNOWN) [Concomitant]
  7. CALCIUM 600 + D(LEKOVIT CA)(UNKNOWN) [Concomitant]
  8. CELEXA(CITALOPRAM HYDROBROMIDE)(UNKNOWN) [Concomitant]
  9. COLACE(DOCUSATE SODIUM)(UNKNOWN) [Concomitant]
  10. EX-LAX(SENNA)(UNKNOWN) [Concomitant]
  11. EYE-SED(TETRYZOLINE HYDROCHLORIDE)(UNKNOWN) [Concomitant]

REACTIONS (4)
  - Rash [None]
  - White blood cell count decreased [None]
  - Platelet count decreased [None]
  - Diarrhoea [None]
